FAERS Safety Report 6408312-7 (Version None)
Quarter: 2009Q4

REPORT INFORMATION
  Report Type: 
  Country: None (occurrence: None)
  Receive Date: 20091021
  Receipt Date: 20091013
  Transmission Date: 20100525
  Serious: Yes (Other)
  Sender: FDA-Public Use
  Company Number: US-JNJFOC-20091005007

PATIENT
  Sex: Male
  Weight: 149.69 kg

DRUGS (7)
  1. LEVAQUIN [Suspect]
     Indication: DIVERTICULITIS
     Route: 048
     Dates: start: 20090214, end: 20090214
  2. GLUCOSAMINE [Concomitant]
     Route: 065
  3. LIPITOR [Concomitant]
     Indication: BLOOD CHOLESTEROL INCREASED
     Route: 065
  4. TERAZOSIN HCL [Concomitant]
     Indication: PROSTATOMEGALY
     Route: 065
  5. AVAPRO [Concomitant]
     Route: 065
  6. MULTI-VITAMINS [Concomitant]
     Route: 065
  7. TESTOSTERONE [Concomitant]
     Route: 065

REACTIONS (3)
  - MENISCUS LESION [None]
  - PHARYNGEAL OEDEMA [None]
  - SWELLING FACE [None]
